FAERS Safety Report 24001541 (Version 1)
Quarter: 2024Q2

REPORT INFORMATION
  Report Type: Spontaneous
  Country: US (occurrence: US)
  Receive Date: 20240621
  Receipt Date: 20240621
  Transmission Date: 20240715
  Serious: Yes (Life-Threatening, Other)
  Sender: FDA-Public Use
  Company Number: US-PFIZER INC-PV202400080523

PATIENT
  Age: 42 Year
  Sex: Female

DRUGS (2)
  1. RITUXIMAB [Suspect]
     Active Substance: RITUXIMAB
     Indication: Hashimoto^s encephalopathy
     Dosage: UNK, MONTHLY (6)
  2. CELLCEPT [Concomitant]
     Active Substance: MYCOPHENOLATE MOFETIL
     Indication: Rheumatoid arthritis
     Dosage: UNK

REACTIONS (7)
  - COVID-19 pneumonia [Recovering/Resolving]
  - Pulmonary embolism [Recovering/Resolving]
  - Respiratory failure [Recovering/Resolving]
  - Cytomegalovirus viraemia [Unknown]
  - Fibrosis [Unknown]
  - Idiopathic interstitial pneumonia [Unknown]
  - Off label use [Unknown]
